FAERS Safety Report 9934806 (Version 2)
Quarter: 2014Q1

REPORT INFORMATION
  Report Type: Report from Study
  Country: CN (occurrence: CN)
  Receive Date: 20140228
  Receipt Date: 20140310
  Transmission Date: 20141002
  Serious: Yes (Hospitalization)
  Sender: FDA-Public Use
  Company Number: CN-GLAXOSMITHKLINE-B0968485A

PATIENT
  Age: 51 Year
  Sex: Female

DRUGS (5)
  1. PLACEBO [Suspect]
     Indication: IMMUNE THROMBOCYTOPENIC PURPURA
     Route: 048
     Dates: start: 20140125
  2. ELTROMBOPAG [Suspect]
     Indication: IMMUNE THROMBOCYTOPENIC PURPURA
     Dates: start: 20140125
  3. AMBROXOL [Concomitant]
     Indication: INCREASED UPPER AIRWAY SECRETION
     Dosage: 30MG TWICE PER DAY
     Route: 042
     Dates: start: 20140203, end: 20140209
  4. ISOSORBIDE DINITRATE [Concomitant]
     Indication: HYPERTENSION
     Dosage: 10MG PER DAY
     Route: 042
     Dates: start: 20140203, end: 20140208
  5. ADENOSINE CYCLOPHOSPHATE [Concomitant]
     Indication: NUTRITIONAL SUPPLEMENTATION
     Dosage: 180MG PER DAY
     Route: 042
     Dates: start: 20140204, end: 20140208

REACTIONS (2)
  - Intussusception [Recovered/Resolved]
  - Intestinal obstruction [Recovered/Resolved]
